FAERS Safety Report 12321715 (Version 1)
Quarter: 2016Q2

REPORT INFORMATION
  Report Type: Spontaneous
  Country: US (occurrence: US)
  Receive Date: 20160502
  Receipt Date: 20160502
  Transmission Date: 20160815
  Serious: Yes (Hospitalization)
  Sender: FDA-Public Use
  Company Number: US-CIPLA-2016US04331

PATIENT

DRUGS (1)
  1. WARFARIN [Suspect]
     Active Substance: WARFARIN

REACTIONS (6)
  - Haemorrhage [Unknown]
  - Intentional overdose [Unknown]
  - Epistaxis [Unknown]
  - Ecchymosis [Unknown]
  - Retroperitoneal haematoma [Unknown]
  - Suicide attempt [Unknown]
